FAERS Safety Report 21534501 (Version 1)
Quarter: 2022Q4

REPORT INFORMATION
  Report Type: Spontaneous
  Country: US (occurrence: US)
  Receive Date: 20221101
  Receipt Date: 20221101
  Transmission Date: 20230113
  Serious: No
  Sender: FDA-Public Use
  Company Number: US-TEVA-2022-US-2082627

PATIENT
  Age: 62 Year
  Sex: Male

DRUGS (1)
  1. AUSTEDO [Suspect]
     Active Substance: DEUTETRABENAZINE
     Indication: Dyskinesia
     Dosage: 36 MILLIGRAM DAILY;
     Route: 048
     Dates: start: 2022, end: 2022

REACTIONS (2)
  - Dyskinesia [Unknown]
  - Trismus [Unknown]
